FAERS Safety Report 5472207-6 (Version None)
Quarter: 2007Q3

REPORT INFORMATION
  Report Type: 
  Country: None (occurrence: None)
  Receive Date: 20070926
  Receipt Date: 20070912
  Transmission Date: 20080115
  Serious: Yes (Other)
  Sender: FDA-Public Use
  Company Number: 310109K07USA

PATIENT
  Age: 35 Year
  Sex: Female

DRUGS (1)
  1. GONAL-F [Suspect]
     Indication: INFERTILITY
     Dates: start: 20061201

REACTIONS (4)
  - ABORTION MISSED [None]
  - CYTOGENETIC ABNORMALITY [None]
  - DRUG EXPOSURE DURING PREGNANCY [None]
  - PREGNANCY [None]
